FAERS Safety Report 11767414 (Version 1)
Quarter: 2015Q4

REPORT INFORMATION
  Report Type: Spontaneous
  Country: US (occurrence: None)
  Receive Date: 20151120
  Receipt Date: 20151120
  Transmission Date: 20160304
  Serious: No
  Sender: FDA-Public Use
  Company Number: None

PATIENT
  Age: 30 Month
  Sex: Male
  Weight: 12.7 kg

DRUGS (5)
  1. PROAIR HFA [Concomitant]
     Active Substance: ALBUTEROL SULFATE
  2. EPIPEN [Concomitant]
     Active Substance: EPINEPHRINE
  3. AUVI-Q [Suspect]
     Active Substance: EPINEPHRINE
     Indication: FOOD ALLERGY
     Dosage: 1 INJECTION, INTO LEG
     Dates: start: 20150806, end: 20150806
  4. AUVI-Q [Suspect]
     Active Substance: EPINEPHRINE
     Indication: ANAPHYLACTIC REACTION
     Dosage: 1 INJECTION, INTO LEG
     Dates: start: 20150806, end: 20150806
  5. FLOVENT [Concomitant]
     Active Substance: FLUTICASONE PROPIONATE

REACTIONS (6)
  - Drug effect decreased [None]
  - Vomiting projectile [None]
  - Swelling face [None]
  - Peripheral swelling [None]
  - Incorrect dose administered by device [None]
  - Product quality issue [None]

NARRATIVE: CASE EVENT DATE: 20150806
